FAERS Safety Report 6390470-4 (Version None)
Quarter: 2009Q4

REPORT INFORMATION
  Report Type: 
  Country: None (occurrence: None)
  Receive Date: 20091003
  Receipt Date: 20090922
  Transmission Date: 20100525
  Serious: Yes (Hospitalization)
  Sender: FDA-Public Use
  Company Number: 2009SP026980

PATIENT
  Age: 15 Year
  Sex: Female

DRUGS (2)
  1. PEG-INTRON [Suspect]
     Indication: BONE SARCOMA
     Dates: start: 20080813, end: 20090529
  2. DOXORUBICIN HCL [Suspect]
     Indication: DRUG USE FOR UNKNOWN INDICATION
     Dosage: 110 MG;UNK;
     Dates: start: 20080813, end: 20090420

REACTIONS (4)
  - C-REACTIVE PROTEIN INCREASED [None]
  - DEVICE RELATED INFECTION [None]
  - ENDOCARDITIS [None]
  - PYREXIA [None]
